FAERS Safety Report 25762598 (Version 4)
Quarter: 2025Q4

REPORT INFORMATION
  Report Type: Spontaneous
  Country: US (occurrence: None)
  Receive Date: 20250904
  Receipt Date: 20251117
  Transmission Date: 20260118
  Serious: Yes (Hospitalization, Other)
  Sender: UCB
  Company Number: US-UCBSA-2025043772

PATIENT
  Age: 30 Year
  Weight: 77.5 kg

DRUGS (1)
  1. BIMZELX [Suspect]
     Active Substance: BIMEKIZUMAB-BKZX
     Indication: Psoriatic arthropathy
     Dosage: 160 MILLIGRAM, EV 4 WEEKS

REACTIONS (5)
  - Spinal operation [Unknown]
  - Postoperative wound infection [Unknown]
  - Psoriatic arthropathy [Unknown]
  - Back injury [Unknown]
  - Nasopharyngitis [Unknown]
